FAERS Safety Report 8888717 (Version 1)
Quarter: 2012Q4

REPORT INFORMATION
  Report Type: 
  Country: US (occurrence: US)
  Receive Date: 20121106
  Receipt Date: 20121106
  Transmission Date: 20130627
  Serious: Yes (Other)
  Sender: FDA-Public Use
  Company Number: US-BRISTOL-MYERS SQUIBB COMPANY-17075730

PATIENT
  Age: 76 Year
  Sex: Male

DRUGS (8)
  1. BARACLUDE [Suspect]
     Indication: HEPATITIS B
  2. GLIPIZIDE [Concomitant]
  3. HYDRALAZINE [Concomitant]
  4. METOPROLOL [Concomitant]
  5. TERAZOSIN [Concomitant]
  6. INSULIN [Concomitant]
  7. LISINOPRIL [Concomitant]
  8. HYDROCHLOROTHIAZIDE [Concomitant]

REACTIONS (1)
  - Blood creatine phosphokinase increased [Unknown]
